FAERS Safety Report 12373845 (Version 1)
Quarter: 2016Q2

REPORT INFORMATION
  Report Type: Spontaneous
  Country: US (occurrence: US)
  Receive Date: 20160517
  Receipt Date: 20160517
  Transmission Date: 20160815
  Serious: No
  Sender: FDA-Public Use
  Company Number: US-ALEXION-A201603453

PATIENT
  Sex: Female
  Weight: 55.33 kg

DRUGS (4)
  1. SOLIRIS [Suspect]
     Active Substance: ECULIZUMAB
     Indication: AUTOIMMUNE HAEMOLYTIC ANAEMIA
     Dosage: 600 MG, UNK
     Route: 042
     Dates: start: 20160229
  2. SOLIRIS [Suspect]
     Active Substance: ECULIZUMAB
     Indication: OFF LABEL USE
     Dosage: 900 UNK, UNK
     Route: 042
     Dates: start: 20160323, end: 20160420
  3. ARANESP [Concomitant]
     Active Substance: DARBEPOETIN ALFA
     Indication: AUTOIMMUNE HAEMOLYTIC ANAEMIA
     Dosage: 500 MG, UNK
     Route: 065
     Dates: start: 20160406
  4. RITUXIMAB [Concomitant]
     Active Substance: RITUXIMAB
     Indication: AUTOIMMUNE HAEMOLYTIC ANAEMIA
     Dosage: 500 MG, UNK
     Route: 065
     Dates: start: 20160303

REACTIONS (2)
  - Off label use [Not Recovered/Not Resolved]
  - Drug dose omission [Unknown]
